FAERS Safety Report 7015446-5 (Version None)
Quarter: 2010Q3

REPORT INFORMATION
  Report Type: 
  Country: None (occurrence: None)
  Receive Date: 20100927
  Receipt Date: 20100914
  Transmission Date: 20110219
  Serious: Yes (Hospitalization, Other)
  Sender: FDA-Public Use
  Company Number: US-ELI_LILLY_AND_COMPANY-US201007007247

PATIENT
  Sex: Female
  Weight: 56.689 kg

DRUGS (12)
  1. FORTEO [Suspect]
     Indication: OSTEOPOROSIS
     Dosage: UNK, UNKNOWN
     Route: 065
     Dates: end: 20100728
  2. ERGOCALCIFEROL [Concomitant]
     Dosage: 50000 U, DAILY (1/D)
  3. DURAGESIC-100 [Concomitant]
     Indication: PAIN
     Dosage: 100 UG, EVERY HOUR
  4. DURAGESIC-100 [Concomitant]
     Dosage: 50 UG, EVERY HOUR
  5. DILAUDID [Concomitant]
     Dosage: 4 MG, AS NEEDED
  6. LORAZEPAM [Concomitant]
  7. INDERAL [Concomitant]
     Dosage: 60 MG, 2/D
  8. RANITIDINE [Concomitant]
     Dosage: 150 MG, 2/D
  9. MAXALT /01406501/ [Concomitant]
     Dosage: 10 MG, AS NEEDED
  10. MAXALT /01406501/ [Concomitant]
     Dosage: 20 MG, AS NEEDED
  11. ZANAFLEX [Concomitant]
  12. VITAMIN B-12 [Concomitant]
     Indication: ANAEMIA

REACTIONS (22)
  - ANAEMIA [None]
  - CALCIFICATION OF MUSCLE [None]
  - DEHYDRATION [None]
  - DEPRESSED LEVEL OF CONSCIOUSNESS [None]
  - EMOTIONAL DISTRESS [None]
  - FATIGUE [None]
  - FIBROSIS [None]
  - HAEMATOCRIT DECREASED [None]
  - HYPOTENSION [None]
  - IMPAIRED HEALING [None]
  - LYMPHOEDEMA [None]
  - NAUSEA [None]
  - NECROSIS [None]
  - OEDEMA PERIPHERAL [None]
  - PAIN IN EXTREMITY [None]
  - PYREXIA [None]
  - SEROMA [None]
  - SOFT TISSUE DISORDER [None]
  - VOMITING [None]
  - WEIGHT DECREASED [None]
  - WOUND DEHISCENCE [None]
  - WOUND INFECTION STAPHYLOCOCCAL [None]
